FAERS Safety Report 16283195 (Version 2)
Quarter: 2022Q2

REPORT INFORMATION
  Report Type: Spontaneous
  Country: US (occurrence: None)
  Receive Date: 20190507
  Receipt Date: 20220512
  Transmission Date: 20220720
  Serious: Yes (Other)
  Sender: FDA-Public Use
  Company Number: 2019SE62315

PATIENT
  Age: 36 Year
  Sex: Female
  Weight: 86.2 kg

DRUGS (34)
  1. NEXIUM [Suspect]
     Active Substance: ESOMEPRAZOLE MAGNESIUM
     Route: 065
  2. OMEPRAZOLE [Suspect]
     Active Substance: OMEPRAZOLE
     Indication: Gastrooesophageal reflux disease
     Route: 065
     Dates: start: 201409, end: 201803
  3. OMEPRAZOLE [Suspect]
     Active Substance: OMEPRAZOLE
     Indication: Gastrooesophageal reflux disease
     Route: 065
  4. PANTOPRAZOLE [Suspect]
     Active Substance: PANTOPRAZOLE
     Indication: Gastrooesophageal reflux disease
     Route: 065
  5. RANITIDINE [Concomitant]
     Active Substance: RANITIDINE
  6. METFORMIN [Concomitant]
     Active Substance: METFORMIN HYDROCHLORIDE
  7. FLUCONAZOLE [Concomitant]
     Active Substance: FLUCONAZOLE
  8. CLINDAMYCIN [Concomitant]
     Active Substance: CLINDAMYCIN
  9. TRAMADOL [Concomitant]
     Active Substance: TRAMADOL
  10. AMLODIPINE [Concomitant]
     Active Substance: AMLODIPINE BESYLATE
  11. HYDROCODONE [Concomitant]
     Active Substance: HYDROCODONE
  12. BRINZOLAMIDE [Concomitant]
     Active Substance: BRINZOLAMIDE
  13. BUDESONIDE [Concomitant]
     Active Substance: BUDESONIDE
  14. CLOBETASOL [Concomitant]
     Active Substance: CLOBETASOL
  15. DULOXETINE [Concomitant]
     Active Substance: DULOXETINE
  16. PRAVASTATIN [Concomitant]
     Active Substance: PRAVASTATIN
  17. TERBINAFINE [Concomitant]
     Active Substance: TERBINAFINE
  18. VENTTOLIN HFA [Concomitant]
  19. DICLOFENAC [Concomitant]
     Active Substance: DICLOFENAC
  20. GLIPIZIDE [Concomitant]
     Active Substance: GLIPIZIDE
  21. TIZANIDINE [Concomitant]
     Active Substance: TIZANIDINE
  22. FLUTICASONE [Concomitant]
     Active Substance: FLUTICASONE
  23. GABAPENTIN [Concomitant]
     Active Substance: GABAPENTIN
  24. ONDANSETRON [Concomitant]
     Active Substance: ONDANSETRON
  25. CEFAZOLIN [Concomitant]
     Active Substance: CEFAZOLIN
  26. ATENOLOL [Concomitant]
     Active Substance: ATENOLOL
  27. DORZOLAMIDE [Concomitant]
     Active Substance: DORZOLAMIDE
  28. ALBUTEROL [Concomitant]
     Active Substance: ALBUTEROL
  29. LINOLEIC ACID/NEOMYCIN SULFATE/9,11-LINOLEIC ACID/PREDNISOLONE [Concomitant]
  30. CYCLOBENZAPRINE [Concomitant]
     Active Substance: CYCLOBENZAPRINE
  31. ULTRAM [Concomitant]
     Active Substance: TRAMADOL HYDROCHLORIDE
  32. SUCRALFATE [Concomitant]
     Active Substance: SUCRALFATE
  33. MONTELUKAST [Concomitant]
     Active Substance: MONTELUKAST SODIUM
  34. IBUPROFEN [Concomitant]
     Active Substance: IBUPROFEN

REACTIONS (1)
  - Chronic kidney disease [Not Recovered/Not Resolved]

NARRATIVE: CASE EVENT DATE: 20110101
